FAERS Safety Report 9798259 (Version 1)
Quarter: 2014Q1

REPORT INFORMATION
  Report Type: Spontaneous
  Country: US (occurrence: None)
  Receive Date: 20140103
  Receipt Date: 20140103
  Transmission Date: 20141002
  Serious: Yes (Hospitalization)
  Sender: FDA-Public Use
  Company Number: None

PATIENT
  Age: 27 Year
  Sex: Female
  Weight: 54.43 kg

DRUGS (2)
  1. SIBUTRAMINE [Suspect]
     Indication: APPETITE DISORDER
     Dosage: 2 X  TWICE DAILY  TAKEN BY MOUTH
     Route: 048
     Dates: start: 2013
  2. ASSET EXTREME + PLUS [Suspect]

REACTIONS (4)
  - Dizziness [None]
  - Palpitations [None]
  - Hypertension [None]
  - Impaired work ability [None]
